FAERS Safety Report 7705380-7 (Version None)
Quarter: 2011Q3

REPORT INFORMATION
  Report Type: 
  Country: None (occurrence: None)
  Receive Date: 20110824
  Receipt Date: 20110817
  Transmission Date: 20111222
  Serious: Yes (Other)
  Sender: FDA-Public Use
  Company Number: AR-AMGEN-ARGSP2011034508

PATIENT
  Age: 72 Year
  Sex: Female
  Weight: 68 kg

DRUGS (8)
  1. METHOTREXATE SODIUM [Concomitant]
     Dosage: UNK
  2. URSODIOL [Concomitant]
     Dosage: UNK
     Route: 048
  3. PILOCARPINE HYDROCHLORIDE [Concomitant]
     Dosage: UNK
     Route: 048
  4. FOLIC ACID [Concomitant]
     Dosage: UNK
  5. CORTISONE ACETATE [Concomitant]
     Dosage: UNK
     Route: 048
  6. ESOMEPRAZOLE MAGNESIUM [Concomitant]
     Dosage: UNK
     Route: 048
  7. ENBREL [Suspect]
     Indication: RHEUMATOID ARTHRITIS
     Dosage: 50 MG, WEEKLY
     Route: 058
     Dates: start: 20110513
  8. LEVOTHYROXINE SODIUM [Concomitant]
     Dosage: UNK

REACTIONS (4)
  - SCIATICA [None]
  - OSTEOARTHRITIS [None]
  - HIRSUTISM [None]
  - ARTHRITIS [None]
